FAERS Safety Report 7418575-7 (Version None)
Quarter: 2011Q2

REPORT INFORMATION
  Report Type: 
  Country: None (occurrence: None)
  Receive Date: 20110415
  Receipt Date: 20110407
  Transmission Date: 20111010
  Serious: Yes (Other)
  Sender: FDA-Public Use
  Company Number: PHHY2010BR43690

PATIENT
  Age: 35 Year
  Sex: Female
  Weight: 86 kg

DRUGS (5)
  1. DIOVAN HCT [Suspect]
     Indication: HYPERTENSION
     Dosage: 1 FILM COATED TABLET (80/12.5 MG), DAILY
     Route: 048
  2. VISKEN [Suspect]
     Indication: HYPERTENSION
     Dosage: 1 TABLET (10 MG), TID
  3. METYLDOPA [Concomitant]
     Indication: HYPERTENSION
     Dosage: 1 TABLET (250 MG), UNK
  4. ASPIRIN [Concomitant]
     Indication: HYPERTENSION
     Dosage: 1 TABLET DAILY
  5. APRESOLINE [Suspect]
     Indication: HYPERTENSION
     Dosage: 1 TABLET (25 MG), TID

REACTIONS (7)
  - BALANCE DISORDER [None]
  - DRUG EXPOSURE DURING PREGNANCY [None]
  - HIGH RISK PREGNANCY [None]
  - FEELING ABNORMAL [None]
  - BLOOD PRESSURE DECREASED [None]
  - BLOOD PRESSURE INCREASED [None]
  - DIZZINESS [None]
